FAERS Safety Report 24047031 (Version 2)
Quarter: 2024Q3

REPORT INFORMATION
  Report Type: Spontaneous
  Country: TW (occurrence: TW)
  Receive Date: 20240703
  Receipt Date: 20240710
  Transmission Date: 20241016
  Serious: Yes (Other)
  Sender: MERCK
  Company Number: TW-009507513-2406TWN010024

PATIENT
  Age: 50 Year
  Sex: Male

DRUGS (3)
  1. PEMBROLIZUMAB [Suspect]
     Active Substance: PEMBROLIZUMAB
     Dosage: UNK
     Dates: start: 20161212, end: 20170103
  2. AFATINIB [Suspect]
     Active Substance: AFATINIB
     Indication: Squamous cell carcinoma of skin
     Dosage: UNK
     Dates: start: 20161212, end: 20170103
  3. AFATINIB [Suspect]
     Active Substance: AFATINIB
     Indication: Gingival cancer
     Dosage: UNK
     Dates: start: 20170109

REACTIONS (2)
  - SJS-TEN overlap [Unknown]
  - Malignant melanoma [Unknown]
